FAERS Safety Report 12059092 (Version 2)
Quarter: 2016Q1

REPORT INFORMATION
  Report Type: Spontaneous
  Country: VE (occurrence: VE)
  Receive Date: 20160210
  Receipt Date: 20160301
  Transmission Date: 20160526
  Serious: Yes (Hospitalization)
  Sender: FDA-Public Use
  Company Number: PHHY2016VE012140

PATIENT
  Sex: Female

DRUGS (2)
  1. FORADIL [Suspect]
     Active Substance: FORMOTEROL FUMARATE
     Indication: ASTHMA
     Dosage: 12 UG, QD
     Route: 055
     Dates: start: 2012
  2. MIFLONIDE [Suspect]
     Active Substance: BUDESONIDE
     Indication: ASTHMA
     Dosage: 400 MG, QD
     Route: 055
     Dates: start: 2012

REACTIONS (6)
  - Obstructive airways disorder [Unknown]
  - Dyspnoea [Unknown]
  - Malaise [Unknown]
  - Feeling abnormal [Unknown]
  - Cough [Unknown]
  - Asthma [Unknown]
